FAERS Safety Report 7003693-8 (Version None)
Quarter: 2010Q3

REPORT INFORMATION
  Report Type: 
  Country: None (occurrence: None)
  Receive Date: 20100920
  Receipt Date: 20091013
  Transmission Date: 20110219
  Serious: Yes (Life-Threatening)
  Sender: FDA-Public Use
  Company Number: US-WYE-H10637609

PATIENT
  Sex: Male
  Weight: 71.28 kg

DRUGS (7)
  1. PROTONIX [Suspect]
     Indication: STRESS ULCER
     Route: 048
     Dates: start: 20090717, end: 20090818
  2. POTASSIUM [Concomitant]
     Indication: HYPOKALAEMIA
     Route: 048
     Dates: start: 20060101
  3. AMIODARONE HYDROCHLORIDE [Concomitant]
  4. PERCOCET [Concomitant]
     Indication: PAIN
     Dosage: TOOK ONLY 2 DOSES, AMOUNT UNKNOWN
     Route: 048
  5. ACETYLSALICYLIC ACID [Concomitant]
  6. WARFARIN SODIUM [Concomitant]
     Indication: VENTRICULAR ASSIST DEVICE INSERTION
     Route: 048
     Dates: start: 19980101
  7. LASIX [Concomitant]
     Indication: CARDIAC FAILURE CONGESTIVE
     Route: 048
     Dates: start: 20060101

REACTIONS (1)
  - DRUG SCREEN FALSE POSITIVE [None]
